FAERS Safety Report 20260713 (Version 1)
Quarter: 2021Q4

REPORT INFORMATION
  Report Type: Spontaneous
  Country: CN (occurrence: CN)
  Receive Date: 20211230
  Receipt Date: 20211230
  Transmission Date: 20220303
  Serious: Yes (Hospitalization)
  Sender: FDA-Public Use
  Company Number: CN-BAXTER-2021BAX042325

PATIENT
  Age: 59 Year
  Sex: Male
  Weight: 60 kg

DRUGS (10)
  1. CYCLOPHOSPHAMIDE [Suspect]
     Active Substance: CYCLOPHOSPHAMIDE
     Indication: Burkitt^s lymphoma
     Route: 041
     Dates: start: 20211206, end: 20211208
  2. SODIUM CHLORIDE [Suspect]
     Active Substance: SODIUM CHLORIDE
     Indication: Medication dilution
     Dosage: RITUXIMAB INJECTION 600 MG DILUTED WITH SOLVENT 0.9% SODIUM CHLORIDE INJECTION 250ML
     Route: 041
     Dates: start: 20211205, end: 20211205
  3. SODIUM CHLORIDE [Suspect]
     Active Substance: SODIUM CHLORIDE
     Dosage: RITUXIMAB INJECTION 100 MG DILUTED WITH SOLVENT 0.9% SODIUM CHLORIDE INJECTION 100ML
     Route: 041
     Dates: start: 20211205, end: 20211205
  4. SODIUM CHLORIDE [Suspect]
     Active Substance: SODIUM CHLORIDE
     Dosage: CYCLOPHOSPHAMIDE FOR INJECTION 0.5G DILUTED WITH SOLVENT 0.9% SODIUM CHLORIDE INJECTION 250ML
     Route: 041
     Dates: start: 20211206, end: 20211208
  5. SODIUM CHLORIDE [Suspect]
     Active Substance: SODIUM CHLORIDE
     Dosage: VINCRISTINE SULFATE FOR INJECTION 2 MG DILUTED WITH SOLVENT 0.9% SODIUM CHLORIDE INJECTION 100ML
     Route: 041
     Dates: start: 20211209, end: 20211209
  6. DEXTROSE [Suspect]
     Active Substance: DEXTROSE
     Indication: Medication dilution
     Dosage: PIRARUBICIN HYDROCHLORIDE FOR INJECTION DILUTED WITH IV GTT SOLVENT 5% GLUCOSE INJECTION (GS) (250ML
     Route: 041
     Dates: start: 20211209
  7. RITUXIMAB [Suspect]
     Active Substance: RITUXIMAB
     Indication: Burkitt^s lymphoma
     Dosage: RITUXIMAB INJECTION 600 MG DILUTED WITH SOLVENT 0.9% SODIUM CHLORIDE INJECTION 250ML
     Route: 041
     Dates: start: 20211205, end: 20211205
  8. RITUXIMAB [Suspect]
     Active Substance: RITUXIMAB
     Dosage: RITUXIMAB INJECTION 100 MG DILUTED WITH SOLVENT 0.9% SODIUM CHLORIDE INJECTION 100ML
     Route: 041
     Dates: start: 20211205, end: 20211205
  9. VINCRISTINE SULFATE [Suspect]
     Active Substance: VINCRISTINE SULFATE
     Indication: Burkitt^s lymphoma
     Dosage: VINCRISTINE SULFATE FOR INJECTION 2 MG DILUTED WITH SOLVENT 0.9% SODIUM CHLORIDE INJECTION 100 ML
     Route: 041
     Dates: start: 20211209, end: 20211209
  10. PIRARUBICIN HYDROCHLORIDE [Suspect]
     Active Substance: PIRARUBICIN HYDROCHLORIDE
     Indication: Burkitt^s lymphoma
     Dosage: PIRARUBICIN HYDROCHLORIDE FOR INJECTION 80 MG DILUTED WITH SOLVENT 5% GLUCOSE INJECTION 250ML
     Route: 041
     Dates: start: 20211209, end: 20211209

REACTIONS (2)
  - White blood cell count decreased [Recovering/Resolving]
  - Neutrophil count decreased [Recovering/Resolving]

NARRATIVE: CASE EVENT DATE: 20211218
